FAERS Safety Report 7555671-8 (Version None)
Quarter: 2011Q2

REPORT INFORMATION
  Report Type: 
  Country: None (occurrence: None)
  Receive Date: 20110617
  Receipt Date: 20080811
  Transmission Date: 20111010
  Serious: Yes (Death, Other)
  Sender: FDA-Public Use
  Company Number: PHMT2007CA01048

PATIENT
  Sex: Female

DRUGS (2)
  1. SANDOSTATIN LAR [Suspect]
     Indication: CARCINOID TUMOUR
     Dosage: 30 MG,EVERY 3 WEEKS
     Route: 030
     Dates: start: 20021004
  2. SANDOSTATIN LAR [Suspect]
     Dosage: 60 MG, EVERY 2 WEEKS
     Route: 030
     Dates: end: 20080716

REACTIONS (4)
  - TRICUSPID VALVE DISEASE [None]
  - LIVER DISORDER [None]
  - CARDIAC MURMUR [None]
  - DEATH [None]
